FAERS Safety Report 8547512 (Version 2)
Quarter: 2013Q1

REPORT INFORMATION
  Report Type: Spontaneous
  Country: FR (occurrence: FR)
  Receive Date: 20120504
  Receipt Date: 20130104
  Transmission Date: 20140127
  Serious: Yes (Life-Threatening, Hospitalization)
  Sender: FDA-Public Use
  Company Number: FR-VERTEX PHARMACEUTICALS INC.-000000000000000588

PATIENT
  Age: 56 Year
  Sex: Male
  Weight: 49 kg

DRUGS (6)
  1. INCIVO [Suspect]
     Indication: HEPATITIS C
     Dosage: DOSAGE FORM: TABLET
     Dates: start: 20120124, end: 20120410
  2. PEGASYS [Suspect]
     Indication: HEPATITIS C
     Dosage: 180 ?G, QW
     Route: 058
     Dates: start: 20120124, end: 20120410
  3. COPEGUS [Suspect]
     Indication: HEPATITIS C
     Dosage: 400 MG, BID
     Route: 048
     Dates: start: 20120124, end: 20120406
  4. COPEGUS [Suspect]
     Dosage: 600 MG, QD
     Route: 048
     Dates: start: 20120406, end: 20120410
  5. JANUMET [Suspect]
     Indication: PRODUCT USED FOR UNKNOWN INDICATION
     Dosage: 1G/50MG
     Dates: end: 20120410
  6. NEORECORMON [Concomitant]
     Route: 058
     Dates: start: 20120406

REACTIONS (5)
  - Lactic acidosis [Not Recovered/Not Resolved]
  - Rhabdomyolysis [Recovered/Resolved]
  - Multi-organ failure [Not Recovered/Not Resolved]
  - Inappropriate schedule of drug administration [Recovered/Resolved]
  - Anaemia [Unknown]
